FAERS Safety Report 5525098-9 (Version None)
Quarter: 2007Q4

REPORT INFORMATION
  Report Type: 
  Country: None (occurrence: None)
  Receive Date: 20071119
  Receipt Date: 20071113
  Transmission Date: 20080405
  Serious: Yes (Hospitalization)
  Sender: FDA-Public Use
  Company Number: 1-15507247

PATIENT
  Age: 48 Year
  Sex: Female

DRUGS (4)
  1. SOLODYN [Suspect]
     Indication: FOLLICULITIS
     Dosage: 1 TABLET DAILY ORALLY; 1 DOSE
     Route: 048
     Dates: start: 20071106
  2. ZOCOR [Concomitant]
  3. WELLBUTRIN [Concomitant]
  4. CENESTIN [Concomitant]

REACTIONS (5)
  - BURNING SENSATION [None]
  - CHILLS [None]
  - NAUSEA [None]
  - PYREXIA [None]
  - TACHYCARDIA [None]
